FAERS Safety Report 7352371-4 (Version None)
Quarter: 2011Q1

REPORT INFORMATION
  Report Type: 
  Country: None (occurrence: None)
  Receive Date: 20110315
  Receipt Date: 20110228
  Transmission Date: 20110831
  Serious: Yes (Hospitalization)
  Sender: FDA-Public Use
  Company Number: US-CTI_01322_2011

PATIENT
  Sex: Female

DRUGS (3)
  1. FACTIVE [Suspect]
     Indication: OROPHARYNGEAL PAIN
     Dates: start: 20110211, end: 20110213
  2. VALTREX [Concomitant]
  3. FACTIVE [Suspect]
     Indication: DYSPHAGIA
     Dates: start: 20110211, end: 20110213

REACTIONS (5)
  - HEART RATE DECREASED [None]
  - RASH VESICULAR [None]
  - MOUTH ULCERATION [None]
  - PYREXIA [None]
  - DYSPHAGIA [None]
